FAERS Safety Report 17433596 (Version 2)
Quarter: 2020Q1

REPORT INFORMATION
  Report Type: Spontaneous
  Country: JP (occurrence: JP)
  Receive Date: 20200219
  Receipt Date: 20200318
  Transmission Date: 20200409
  Serious: Yes (Other)
  Sender: FDA-Public Use
  Company Number: JP-GLAXOSMITHKLINE-JP2020JPN027170

PATIENT
  Age: 41 Year
  Sex: Female
  Weight: 54 kg

DRUGS (5)
  1. RELVAR ELLIPTA [Suspect]
     Active Substance: FLUTICASONE FUROATE\VILANTEROL TRIFENATATE
     Indication: ASTHMA
     Dosage: 200 ?G, QD, BEFORE BEDTIME
     Route: 055
     Dates: start: 201911, end: 202002
  2. ONON [Concomitant]
     Active Substance: PRANLUKAST
     Dosage: 2 DF, 1D
     Dates: start: 20191213
  3. MUCODYNE [Concomitant]
     Active Substance: CARBOCYSTEINE
     Dosage: 3 DF, 1D
     Dates: start: 20191129
  4. MUCOSOLVAN (AMBROXOL HYDROCHLORIDE) [Concomitant]
     Active Substance: AMBROXOL HYDROCHLORIDE
     Dosage: 3 DF, 1D
     Dates: start: 20191101
  5. THEO-DUR [Concomitant]
     Active Substance: THEOPHYLLINE ANHYDROUS
     Dosage: 2 DF, 1D
     Dates: start: 20191101

REACTIONS (1)
  - Oesophageal candidiasis [Unknown]

NARRATIVE: CASE EVENT DATE: 20200122
